FAERS Safety Report 15839968 (Version 5)
Quarter: 2019Q1

REPORT INFORMATION
  Report Type: Spontaneous
  Country: US (occurrence: US)
  Receive Date: 20190117
  Receipt Date: 20190328
  Transmission Date: 20190417
  Serious: Yes (Hospitalization)
  Sender: FDA-Public Use
  Company Number: US-ACTELION-A-US2019-184866

PATIENT
  Age: 9 Month
  Sex: Female

DRUGS (4)
  1. TRACLEER [Suspect]
     Active Substance: BOSENTAN
     Indication: PULMONARY ARTERIAL HYPERTENSION
     Dosage: 12.8 MG, BID
     Route: 048
     Dates: start: 20180919
  2. REMODULIN [Concomitant]
     Active Substance: TREPROSTINIL
     Dosage: 0.023 ML/HR +133 NG/KG/MIN
     Dates: start: 20180928
  3. SILDENAFIL. [Concomitant]
     Active Substance: SILDENAFIL
     Indication: PULMONARY ARTERIAL HYPERTENSION
     Dosage: 0.7 ML, Q6HRS
     Route: 065
     Dates: start: 20180917
  4. TRACLEER [Suspect]
     Active Substance: BOSENTAN
     Indication: RESPIRATORY SYNCYTIAL VIRUS INFECTION
     Dosage: 13.6 MG, Q12HRS
     Route: 048

REACTIONS (11)
  - Chronic respiratory failure [Unknown]
  - Cellulitis [Not Recovered/Not Resolved]
  - Adenovirus encephalomyeloradiculitis [Unknown]
  - Therapy change [Unknown]
  - Cough [Not Recovered/Not Resolved]
  - Hypoxia [Unknown]
  - Vomiting [Not Recovered/Not Resolved]
  - Brain natriuretic peptide increased [Unknown]
  - Influenza [Not Recovered/Not Resolved]
  - Diarrhoea [Not Recovered/Not Resolved]
  - Weight increased [Unknown]

NARRATIVE: CASE EVENT DATE: 20190218
